FAERS Safety Report 20390611 (Version 3)
Quarter: 2022Q1

REPORT INFORMATION
  Report Type: Spontaneous
  Country: DE (occurrence: DE)
  Receive Date: 20220128
  Receipt Date: 20220202
  Transmission Date: 20220423
  Serious: Yes (Hospitalization)
  Sender: FDA-Public Use
  Company Number: DE-MYLANLABS-2022M1007320

PATIENT
  Age: 7 Year
  Sex: Female

DRUGS (2)
  1. BACLOFEN [Suspect]
     Active Substance: BACLOFEN
     Indication: Cerebral palsy
     Dosage: 150 MICROGRAM, QD
     Route: 037
  2. BACLOFEN [Suspect]
     Active Substance: BACLOFEN
     Dosage: 320 MICROGRAM, QD
     Route: 037

REACTIONS (6)
  - Device failure [Unknown]
  - Accidental underdose [Unknown]
  - Muscle spasticity [Unknown]
  - Condition aggravated [Unknown]
  - Crying [Unknown]
  - Restlessness [Unknown]
